FAERS Safety Report 25996670 (Version 1)
Quarter: 2025Q4

REPORT INFORMATION
  Report Type: Spontaneous
  Country: CN (occurrence: CN)
  Receive Date: 20251104
  Receipt Date: 20251104
  Transmission Date: 20260118
  Serious: Yes (Hospitalization)
  Sender: COHERUS
  Company Number: CN-SHANGHAI JUNSHI BIOSCIENCES CO., LTD.-CN2025016258

PATIENT

DRUGS (5)
  1. TORIPALIMAB [Suspect]
     Active Substance: TORIPALIMAB
     Indication: Nasopharyngeal cancer recurrent
     Dosage: 240 MG, Q3W
     Route: 041
     Dates: start: 20250819, end: 20250819
  2. TORIPALIMAB [Suspect]
     Active Substance: TORIPALIMAB
     Dosage: 240 MG, Q3W
     Route: 041
     Dates: start: 20250918, end: 20250918
  3. TORIPALIMAB [Suspect]
     Active Substance: TORIPALIMAB
     Dosage: 240 MG, Q3W
     Route: 041
     Dates: start: 20251020, end: 20251020
  4. GEMCITABINE HYDROCHLORIDE [Suspect]
     Active Substance: GEMCITABINE HYDROCHLORIDE
     Indication: Nasopharyngeal cancer recurrent
     Dosage: 1.6 G, Q3W, D1 AND D8
     Route: 041
     Dates: start: 20250819, end: 20250918
  5. CISPLATIN [Suspect]
     Active Substance: CISPLATIN
     Indication: Nasopharyngeal cancer recurrent
     Dosage: 40 MG, Q3W, D1 TO D3
     Route: 041
     Dates: start: 20250819, end: 20250918

REACTIONS (1)
  - Epistaxis [Recovering/Resolving]

NARRATIVE: CASE EVENT DATE: 20251015
